FAERS Safety Report 5252920-6 (Version None)
Quarter: 2007Q1

REPORT INFORMATION
  Report Type: 
  Country: None (occurrence: None)
  Receive Date: 20070227
  Receipt Date: 20070213
  Transmission Date: 20070707
  Serious: Yes (Death, Other)
  Sender: FDA-Public Use
  Company Number: GXKR2007GB01682

PATIENT
  Age: 71 Year
  Sex: Female

DRUGS (1)
  1. WARFARIN SODIUM [Suspect]

REACTIONS (4)
  - FALL [None]
  - PELVIC FRACTURE [None]
  - RETROPERITONEAL HAEMATOMA [None]
  - VASCULAR INJURY [None]
